FAERS Safety Report 17574208 (Version 1)
Quarter: 2020Q1

REPORT INFORMATION
  Report Type: Spontaneous
  Country: US (occurrence: US)
  Receive Date: 20200323
  Receipt Date: 20200323
  Transmission Date: 20200409
  Serious: No
  Sender: FDA-Public Use
  Company Number: US-GLENMARK PHARMACEUTICALS-2019GMK041842

PATIENT

DRUGS (2)
  1. LITHIUM CARBONATE. [Suspect]
     Active Substance: LITHIUM CARBONATE
     Indication: MENTAL DISORDER
     Dosage: 600 MG, QD (TWO CAPSULES EVERY NIGHT)
     Route: 048
     Dates: start: 2009
  2. SEROQUEL [Concomitant]
     Active Substance: QUETIAPINE FUMARATE
     Indication: MENTAL DISORDER
     Dosage: UNK
     Route: 065

REACTIONS (7)
  - Underdose [Unknown]
  - Tremor [Unknown]
  - Product dose omission [Unknown]
  - Product substitution issue [Unknown]
  - Abdominal distension [Not Recovered/Not Resolved]
  - Product formulation issue [Unknown]
  - Weight increased [Unknown]

NARRATIVE: CASE EVENT DATE: 2009
